FAERS Safety Report 5313580-9 (Version None)
Quarter: 2007Q2

REPORT INFORMATION
  Report Type: 
  Country: None (occurrence: None)
  Receive Date: 20070425
  Receipt Date: 20070411
  Transmission Date: 20071010
  Serious: Yes (Hospitalization)
  Sender: FDA-Public Use
  Company Number: FSC_0089_2007

PATIENT
  Sex: Male
  Weight: 75 kg

DRUGS (1)
  1. ISOPTIN [Suspect]
     Indication: ATRIAL FIBRILLATION
     Dosage: (ORAL)
     Route: 048
     Dates: end: 20070401

REACTIONS (6)
  - BRONCHOSPASM [None]
  - CONSTIPATION [None]
  - MUSCULAR WEAKNESS [None]
  - MYALGIA [None]
  - OEDEMA PERIPHERAL [None]
  - PULMONARY OEDEMA [None]
